FAERS Safety Report 11953609 (Version 1)
Quarter: 2016Q1

REPORT INFORMATION
  Report Type: Spontaneous
  Country: US (occurrence: US)
  Receive Date: 20160126
  Receipt Date: 20160126
  Transmission Date: 20160526
  Serious: No
  Sender: FDA-Public Use
  Company Number: US-BAUSCH-BL-2015-002890

PATIENT
  Age: 27 Year
  Sex: Female
  Weight: 63.56 kg

DRUGS (2)
  1. ALAWAY [Suspect]
     Active Substance: KETOTIFEN FUMARATE
     Indication: EYE ALLERGY
     Route: 047
     Dates: start: 201501, end: 20150208
  2. NATURAL TEARS EYE DROPS [Concomitant]
     Indication: PRODUCT USED FOR UNKNOWN INDICATION

REACTIONS (3)
  - Eye pain [Recovered/Resolved]
  - Ocular discomfort [Recovered/Resolved]
  - Migraine [Recovered/Resolved]

NARRATIVE: CASE EVENT DATE: 20150201
